FAERS Safety Report 13278213 (Version 1)
Quarter: 2017Q1

REPORT INFORMATION
  Report Type: Spontaneous
  Country: US (occurrence: US)
  Receive Date: 20170228
  Receipt Date: 20170228
  Transmission Date: 20170428
  Serious: Yes (Other)
  Sender: FDA-Public Use
  Company Number: US-SUCAMPO PHARMACEUTICALS INC.-SPI201700236

PATIENT

DRUGS (1)
  1. AMITIZA [Suspect]
     Active Substance: LUBIPROSTONE
     Indication: PRODUCT USED FOR UNKNOWN INDICATION
     Dosage: 1 UNK, SINGLE
     Route: 048

REACTIONS (1)
  - Respiratory failure [Unknown]
